FAERS Safety Report 9123950 (Version 2)
Quarter: 2013Q1

REPORT INFORMATION
  Report Type: Spontaneous
  Country: AU (occurrence: AU)
  Receive Date: 20130227
  Receipt Date: 20130304
  Transmission Date: 20140127
  Serious: Yes (Other)
  Sender: FDA-Public Use
  Company Number: AU-UCBSA-078923

PATIENT
  Age: 35 Year
  Sex: Female

DRUGS (7)
  1. KEPPRA [Suspect]
     Dosage: 1000MG
     Dates: end: 201112
  2. KEPPRA [Suspect]
     Dosage: REDUCED TO 500MG
     Dates: start: 201112
  3. KEPPRA [Suspect]
     Dosage: CONTINUED TO REDUCE
  4. KEPPRA [Suspect]
     Dates: start: 201201, end: 2012
  5. CANNABIS [Suspect]
  6. SUBOXONE [Suspect]
     Dates: end: 201112
  7. SUBOXONE [Suspect]
     Dosage: CONTINUED TO REDUCE AND COMPLETELY CEASED
     Dates: start: 201112, end: 2012

REACTIONS (4)
  - Grand mal convulsion [Recovered/Resolved]
  - VIIth nerve paralysis [Recovering/Resolving]
  - Withdrawal syndrome [Recovering/Resolving]
  - Drug ineffective [Recovered/Resolved]
